FAERS Safety Report 10007357 (Version 1)
Quarter: 2014Q1

REPORT INFORMATION
  Report Type: Spontaneous
  Country: US (occurrence: US)
  Receive Date: 20140313
  Receipt Date: 20140313
  Transmission Date: 20141002
  Serious: No
  Sender: FDA-Public Use
  Company Number: US-TEVA-467874USA

PATIENT
  Sex: Female

DRUGS (1)
  1. PROAIR HFA [Suspect]
     Indication: CHEST DISCOMFORT
     Route: 055

REACTIONS (4)
  - Drug ineffective [Recovered/Resolved]
  - Chest discomfort [Unknown]
  - Chest discomfort [Unknown]
  - Psychomotor hyperactivity [Recovered/Resolved]
